FAERS Safety Report 11658893 (Version 4)
Quarter: 2015Q4

REPORT INFORMATION
  Report Type: Spontaneous
  Country: US (occurrence: US)
  Receive Date: 20151026
  Receipt Date: 20151122
  Transmission Date: 20160304
  Serious: No
  Sender: FDA-Public Use
  Company Number: PHEH2015US021393

PATIENT
  Sex: Female

DRUGS (1)
  1. SANDOSTATIN LAR DEPOT [Suspect]
     Active Substance: OCTREOTIDE ACETATE
     Indication: CARCINOID TUMOUR
     Dosage: UNK, QMO
     Route: 030
     Dates: start: 20150620, end: 20151020

REACTIONS (4)
  - Diarrhoea [Recovering/Resolving]
  - Flushing [Recovering/Resolving]
  - Migraine with aura [Unknown]
  - Fatigue [Unknown]
